FAERS Safety Report 8198741-6 (Version None)
Quarter: 2012Q1

REPORT INFORMATION
  Report Type: 
  Country: None (occurrence: None)
  Receive Date: 20120309
  Receipt Date: 20120209
  Transmission Date: 20120608
  Serious: No
  Sender: FDA-Public Use
  Company Number: US-AMGEN-USASP2012008831

PATIENT
  Sex: Female

DRUGS (11)
  1. PROLIA [Suspect]
     Indication: OSTEOPOROSIS POSTMENOPAUSAL
     Dosage: 60 MG, Q6MO
     Dates: start: 20110301
  2. MOBIC [Concomitant]
  3. VESICARE [Concomitant]
  4. COUMADIN [Concomitant]
  5. COZAAR [Concomitant]
  6. NEURONTIN [Concomitant]
  7. AVONEX [Concomitant]
  8. LOPRESSOR [Concomitant]
  9. SYNTHROID [Concomitant]
  10. ALDACTONE [Concomitant]
  11. LIPITOR [Concomitant]

REACTIONS (1)
  - BACK PAIN [None]
